FAERS Safety Report 25340005 (Version 1)
Quarter: 2025Q2

REPORT INFORMATION
  Report Type: Spontaneous
  Country: US (occurrence: US)
  Receive Date: 20250521
  Receipt Date: 20250521
  Transmission Date: 20250717
  Serious: No
  Sender: TEVA
  Company Number: US-TEVA-VS-3331165

PATIENT

DRUGS (1)
  1. UZEDY [Suspect]
     Active Substance: RISPERIDONE
     Indication: Product used for unknown indication
     Route: 030

REACTIONS (5)
  - Alanine aminotransferase abnormal [Unknown]
  - Electrocardiogram change [Unknown]
  - Incorrect route of product administration [Unknown]
  - Blood creatine phosphokinase abnormal [Unknown]
  - Aspartate aminotransferase abnormal [Unknown]
